FAERS Safety Report 4362627-5 (Version None)
Quarter: 2004Q2

REPORT INFORMATION
  Report Type: 
  Country: None (occurrence: None)
  Receive Date: 20040520
  Receipt Date: 20040504
  Transmission Date: 20050107
  Serious: Yes (Hospitalization)
  Sender: FDA-Public Use
  Company Number: US-JNJFOC-20040501407

PATIENT
  Age: 63 Year
  Sex: Female
  Weight: 68.0396 kg

DRUGS (3)
  1. ELMIRON [Suspect]
     Indication: CYSTITIS INTERSTITIAL
     Dosage: 200 MG, 2 IN 1 DAY, ORAL
     Route: 048
     Dates: start: 20040311
  2. SODIUM BICARBONATE (SODIUM BICARONATE) [Suspect]
     Indication: CYSTITIS INTERSTITIAL
     Dosage: 4 TEASPOONS IN WATER, PER DAY
     Dates: start: 20040311
  3. NITROFUR (NITROFURANTOIN) [Concomitant]

REACTIONS (2)
  - BLOOD GLUCOSE FLUCTUATION [None]
  - HYPERTENSION [None]
